FAERS Safety Report 21734630 (Version 1)
Quarter: 2022Q4

REPORT INFORMATION
  Report Type: Spontaneous
  Country: AT (occurrence: None)
  Receive Date: 20221215
  Receipt Date: 20221215
  Transmission Date: 20230113
  Serious: Yes (Other)
  Sender: FDA-Public Use
  Company Number: AT-ROCHE-3213726

PATIENT
  Age: 49 Year
  Sex: Male
  Weight: 75 kg

DRUGS (2)
  1. OCREVUS [Suspect]
     Active Substance: OCRELIZUMAB
     Indication: Relapsing-remitting multiple sclerosis
     Dosage: DISCONTINUED DUE TO AE
     Route: 065
     Dates: start: 202012, end: 202101
  2. SIPONIMOD [Concomitant]
     Active Substance: SIPONIMOD
     Dosage: ONGOING TILL PRESENT
     Dates: start: 202108

REACTIONS (1)
  - Secondary progressive multiple sclerosis [Unknown]

NARRATIVE: CASE EVENT DATE: 20201201
